FAERS Safety Report 9316705 (Version 1)
Quarter: 2013Q2

REPORT INFORMATION
  Report Type: Spontaneous
  Country: US (occurrence: None)
  Receive Date: 20130528
  Receipt Date: 20130528
  Transmission Date: 20140414
  Serious: Yes (Life-Threatening, Disabling, Other)
  Sender: FDA-Public Use
  Company Number: None

PATIENT
  Age: 46 Year
  Sex: Female
  Weight: 60.78 kg

DRUGS (2)
  1. LUPRON [Suspect]
     Dosage: ONCE A MONTH
     Route: 030
     Dates: start: 20101017, end: 20101116
  2. NORETHRINE ACETATE [Suspect]
     Dosage: AS NEEDED OTHER
     Dates: start: 20101116, end: 20101201

REACTIONS (12)
  - Intraocular pressure increased [None]
  - Cardiac valve disease [None]
  - Migraine [None]
  - Fatigue [None]
  - Pain [None]
  - Vision blurred [None]
  - Amnesia [None]
  - Loss of consciousness [None]
  - Thyroid disorder [None]
  - Anger [None]
  - Depression [None]
  - Abnormal behaviour [None]
